FAERS Safety Report 5047641-9 (Version None)
Quarter: 2006Q3

REPORT INFORMATION
  Report Type: 
  Country: None (occurrence: None)
  Receive Date: 20060703
  Receipt Date: 20060619
  Transmission Date: 20061208
  Serious: No
  Sender: FDA-Public Use
  Company Number: 200601996

PATIENT
  Age: 32 Year
  Sex: Male

DRUGS (1)
  1. BOTOX [Suspect]
     Indication: MUSCLE SPASTICITY
     Dosage: SINGLE, INTRAMUSCULAR
     Route: 030
     Dates: start: 20060215, end: 20060215

REACTIONS (1)
  - MYELITIS TRANSVERSE [None]
